FAERS Safety Report 22530984 (Version 1)
Quarter: 2023Q2

REPORT INFORMATION
  Report Type: Spontaneous
  Country: FR (occurrence: FR)
  Receive Date: 20230607
  Receipt Date: 20230607
  Transmission Date: 20230722
  Serious: Yes (Other)
  Sender: FDA-Public Use
  Company Number: FR-AFSSAPS-BX2023000473

PATIENT
  Age: 11 Year
  Sex: Male
  Weight: 40 kg

DRUGS (1)
  1. MORPHINE [Suspect]
     Active Substance: MORPHINE
     Indication: Pain
     Dosage: 3.7 MILLIGRAM, 1DOSE/1HOUR
     Route: 040
     Dates: start: 20230112, end: 20230112

REACTIONS (2)
  - Product prescribing error [Recovered/Resolved]
  - Bradypnoea [Recovered/Resolved]

NARRATIVE: CASE EVENT DATE: 20230112
